FAERS Safety Report 4429089-0 (Version None)
Quarter: 2004Q3

REPORT INFORMATION
  Report Type: 
  Country: None (occurrence: None)
  Receive Date: 20040726
  Receipt Date: 20040312
  Transmission Date: 20050211
  Serious: No
  Sender: FDA-Public Use
  Company Number: USA040361854

PATIENT
  Age: 72 Year
  Sex: Female
  Weight: 75 kg

DRUGS (5)
  1. FORTEO [Suspect]
     Indication: OSTEOPOROSIS
     Dosage: 20 UG/1 DAY
     Dates: start: 20030601
  2. SYNTHROID [Concomitant]
  3. PRILOSEC [Concomitant]
  4. LOPID [Concomitant]
  5. ASPIRIN [Concomitant]

REACTIONS (4)
  - FATIGUE [None]
  - OEDEMA [None]
  - PAIN IN EXTREMITY [None]
  - WEIGHT INCREASED [None]
